FAERS Safety Report 5632402-X (Version None)
Quarter: 2008Q1

REPORT INFORMATION
  Report Type: 
  Country: None (occurrence: None)
  Receive Date: 20080220
  Receipt Date: 20080128
  Transmission Date: 20080703
  Serious: No
  Sender: FDA-Public Use
  Company Number: US-BOEHRINGER INGELHEIM GMBH, GERMANY-2008-BP-01358BP

PATIENT
  Age: 8 Decade
  Sex: Male

DRUGS (1)
  1. FLOMAX [Suspect]
     Route: 048
     Dates: start: 20060101, end: 20060101

REACTIONS (3)
  - AGITATION [None]
  - CONFUSIONAL STATE [None]
  - FEELING ABNORMAL [None]
